FAERS Safety Report 25287345 (Version 1)
Quarter: 2025Q2

REPORT INFORMATION
  Report Type: Spontaneous
  Country: US (occurrence: None)
  Receive Date: 20250509
  Receipt Date: 20250509
  Transmission Date: 20250717
  Serious: Yes (Death)
  Sender: FDA-CTU
  Company Number: None

PATIENT
  Age: 75 Year
  Sex: Female
  Weight: 69.9 kg

DRUGS (2)
  1. FEMARA [Suspect]
     Active Substance: LETROZOLE
     Dates: start: 20241212, end: 20250411
  2. DALTEPARIN [Concomitant]
     Active Substance: DALTEPARIN

REACTIONS (2)
  - Haemorrhagic stroke [None]
  - Coagulopathy [None]

NARRATIVE: CASE EVENT DATE: 20250411
